FAERS Safety Report 21330258 (Version 10)
Quarter: 2022Q4

REPORT INFORMATION
  Report Type: Report from Study
  Country: BR (occurrence: BR)
  Receive Date: 20220913
  Receipt Date: 20221223
  Transmission Date: 20230112
  Serious: Yes (Other)
  Sender: FDA-Public Use
  Company Number: BR-TAKEDA-BR202009821

PATIENT
  Sex: Male
  Weight: 23 kg

DRUGS (7)
  1. IDURSULFASE [Suspect]
     Active Substance: IDURSULFASE
     Indication: Mucopolysaccharidosis II
     Dosage: 2 DOSAGE FORM
     Route: 065
     Dates: start: 201606
  2. IDURSULFASE [Suspect]
     Active Substance: IDURSULFASE
     Dosage: 2 DOSAGE FORM, 1/WEEK
     Route: 065
     Dates: start: 201706
  3. IDURSULFASE [Suspect]
     Active Substance: IDURSULFASE
     Dosage: 2 DOSAGE FORM, 1/WEEK
     Route: 042
     Dates: start: 20170601
  4. IDURSULFASE [Suspect]
     Active Substance: IDURSULFASE
     Dosage: 2 DOSAGE FORM, 1/WEEK
     Route: 042
     Dates: start: 2017
  5. IDURSULFASE [Suspect]
     Active Substance: IDURSULFASE
     Dosage: 4 DOSAGE FORM
     Route: 042
     Dates: start: 201707
  6. IDURSULFASE [Suspect]
     Active Substance: IDURSULFASE
     Dosage: 3 DOSAGE FORM
     Route: 042
  7. RISPERIDONE [Concomitant]
     Active Substance: RISPERIDONE
     Dosage: UNK
     Route: 065

REACTIONS (25)
  - Intentional self-injury [Unknown]
  - Respiratory failure [Unknown]
  - Eye haematoma [Unknown]
  - Illness [Unknown]
  - Nausea [Unknown]
  - Limb discomfort [Recovered/Resolved]
  - Skin abrasion [Recovering/Resolving]
  - Agitation [Recovered/Resolved]
  - Fall [Recovering/Resolving]
  - Mobility decreased [Recovering/Resolving]
  - Tongue injury [Recovering/Resolving]
  - Crying [Unknown]
  - Dyspnoea [Recovered/Resolved]
  - Wheezing [Recovered/Resolved]
  - Productive cough [Recovered/Resolved]
  - Respiratory tract congestion [Recovered/Resolved]
  - Poor venous access [Recovered/Resolved]
  - Oxygen saturation decreased [Recovered/Resolved]
  - Post procedural complication [Recovered/Resolved]
  - Nervousness [Unknown]
  - Needle issue [Unknown]
  - Product availability issue [Unknown]
  - Product dose omission issue [Unknown]
  - Inappropriate schedule of product administration [Unknown]
  - Incorrect product administration duration [Not Recovered/Not Resolved]

NARRATIVE: CASE EVENT DATE: 20170101
